FAERS Safety Report 6994362-9 (Version None)
Quarter: 2010Q3

REPORT INFORMATION
  Report Type: 
  Country: None (occurrence: None)
  Receive Date: 20100917
  Receipt Date: 20100908
  Transmission Date: 20110219
  Serious: Yes (Other)
  Sender: FDA-Public Use
  Company Number: US-AMGEN-KDL422559

PATIENT
  Sex: Male
  Weight: 67.6 kg

DRUGS (8)
  1. PROCRIT [Suspect]
     Indication: RENAL FAILURE CHRONIC
     Route: 058
     Dates: start: 20090101
  2. MULTI-VITAMINS [Concomitant]
  3. CARDURA [Concomitant]
  4. NORVASC [Concomitant]
  5. COREG [Concomitant]
  6. UNSPECIFIED THYROID MEDICATION [Concomitant]
  7. ASPIRIN [Concomitant]
  8. IRON [Concomitant]

REACTIONS (2)
  - DRUG INEFFECTIVE [None]
  - HAEMATOCRIT DECREASED [None]
